FAERS Safety Report 9296566 (Version 7)
Quarter: 2015Q2

REPORT INFORMATION
  Report Type: Spontaneous
  Country: US (occurrence: US)
  Receive Date: 20130517
  Receipt Date: 20150623
  Transmission Date: 20150821
  Serious: Yes (Hospitalization, Disabling, Other)
  Sender: FDA-Public Use
  Company Number: US-009507513-1305USA007050

PATIENT
  Sex: Female
  Weight: 52.61 kg

DRUGS (3)
  1. ALENDRONATE SODIUM. [Suspect]
     Active Substance: ALENDRONATE SODIUM
     Indication: OSTEOPOROSIS
  2. FOSAMAX [Suspect]
     Active Substance: ALENDRONATE SODIUM
     Dosage: 70 MG, QW
     Route: 048
     Dates: start: 20000205, end: 20120904
  3. FOSAMAX [Suspect]
     Active Substance: ALENDRONATE SODIUM
     Indication: OSTEOPOROSIS
     Dosage: 10 MG, QD
     Route: 048
     Dates: start: 19951031, end: 20001101

REACTIONS (23)
  - Essential hypertension [Unknown]
  - Perineal erythema [Unknown]
  - Breast cancer [Unknown]
  - Femur fracture [Recovered/Resolved]
  - Blindness [Unknown]
  - Breast reconstruction [Unknown]
  - Anaemia postoperative [Recovering/Resolving]
  - Cataract operation [Unknown]
  - Inappropriate schedule of drug administration [Unknown]
  - Thyroid disorder [Unknown]
  - Thyroidectomy [Unknown]
  - Arthralgia [Unknown]
  - Cholecystectomy [Unknown]
  - Hypercholesterolaemia [Unknown]
  - Hypothyroidism [Unknown]
  - Arthritis [Unknown]
  - Intramedullary rod insertion [Unknown]
  - Hysterectomy [Unknown]
  - Nausea [Unknown]
  - Mastectomy [Unknown]
  - Hypoacusis [Unknown]
  - Breast prosthesis implantation [Unknown]
  - Thyroid cancer [Unknown]

NARRATIVE: CASE EVENT DATE: 2001
